FAERS Safety Report 5171613-7 (Version None)
Quarter: 2006Q4

REPORT INFORMATION
  Report Type: 
  Country: None (occurrence: None)
  Receive Date: 20061205
  Receipt Date: 20061120
  Transmission Date: 20070319
  Serious: Yes (Other)
  Sender: FDA-Public Use
  Company Number: 2006143675

PATIENT
  Age: 78 Year
  Sex: Female
  Weight: 52.1637 kg

DRUGS (3)
  1. CELEBREX [Suspect]
     Indication: ARTHRITIS
     Dosage: 200 MG, 1 D,ORAL
     Route: 048
     Dates: start: 20050101, end: 20061116
  2. HYDROCODONE BITARTRATE [Concomitant]
  3. DIGITEX (DIGOXIN) [Concomitant]

REACTIONS (3)
  - BRAIN NEOPLASM [None]
  - DISORIENTATION [None]
  - DIZZINESS [None]
